FAERS Safety Report 8588992-0 (Version None)
Quarter: 2012Q3

REPORT INFORMATION
  Report Type: 
  Country: None (occurrence: None)
  Receive Date: 20120813
  Receipt Date: 20120806
  Transmission Date: 20120928
  Serious: No
  Sender: FDA-Public Use
  Company Number: US-BAYER-2012-081291

PATIENT

DRUGS (1)
  1. ALEVE (CAPLET) [Suspect]
     Indication: MIGRAINE
     Route: 048

REACTIONS (1)
  - MIGRAINE [None]
